FAERS Safety Report 8298258-4 (Version None)
Quarter: 2012Q2

REPORT INFORMATION
  Report Type: 
  Country: None (occurrence: None)
  Receive Date: 20120419
  Receipt Date: 20120208
  Transmission Date: 20120825
  Serious: No
  Sender: FDA-Public Use
  Company Number: US-BRISTOL-MYERS SQUIBB COMPANY-16389629

PATIENT
  Age: 64 Year
  Sex: Male

DRUGS (1)
  1. YERVOY [Suspect]
     Indication: METASTATIC MALIGNANT MELANOMA
     Dosage: 500ML XL BAG USED WITH 50ML CONCENTRATION:LESS THAN 1MG/ML
     Dates: start: 20120119

REACTIONS (1)
  - INCORRECT DOSE ADMINISTERED [None]
